FAERS Safety Report 4701845-0 (Version None)
Quarter: 2005Q2

REPORT INFORMATION
  Report Type: 
  Country: None (occurrence: None)
  Receive Date: 20050627
  Receipt Date: 20050120
  Transmission Date: 20051028
  Serious: Yes (Hospitalization)
  Sender: FDA-Public Use
  Company Number: 230123M05USA

PATIENT
  Age: 48 Year
  Sex: Female

DRUGS (10)
  1. REBIF [Suspect]
     Indication: MULTIPLE SCLEROSIS
     Dosage: 44 MCG, 3 IN 1 WEEKS, SUBCUTANEOUS
     Route: 058
     Dates: start: 20050117
  2. DETROL [Concomitant]
  3. EFFEXOR [Concomitant]
  4. BUPROPION (BUPROPION) [Concomitant]
  5. BACLOFEN [Concomitant]
  6. METHYLPHENIDATE HCL [Concomitant]
  7. CALCIUM (CALCIUM) [Concomitant]
  8. REGLAN [Concomitant]
  9. PRILOSEC [Concomitant]
  10. IBUPROFEN [Concomitant]

REACTIONS (2)
  - CLOSTRIDIUM COLITIS [None]
  - WOUND INFECTION [None]
